FAERS Safety Report 4285280-8 (Version None)
Quarter: 2004Q1

REPORT INFORMATION
  Report Type: 
  Country: None (occurrence: None)
  Receive Date: 20040202
  Receipt Date: 20040120
  Transmission Date: 20041129
  Serious: Yes (Death, Life-Threatening, Hospitalization)
  Sender: FDA-Public Use
  Company Number: CA-JNJFOC-20031100071

PATIENT
  Age: 65 Year
  Sex: Female
  Weight: 60 kg

DRUGS (10)
  1. REMICADE [Suspect]
     Indication: RHEUMATOID ARTHRITIS
     Dosage: 200 MG, 1 IN 1 DAY, INTRAVENOUS; 2000 MG, INTRAVENOUS
     Route: 042
     Dates: start: 20030912, end: 20030912
  2. REMICADE [Suspect]
     Indication: RHEUMATOID ARTHRITIS
     Dosage: 200 MG, 1 IN 1 DAY, INTRAVENOUS; 2000 MG, INTRAVENOUS
     Route: 042
     Dates: start: 20030623
  3. METHOTREXATE [Concomitant]
  4. TYLENOL [Concomitant]
  5. TYLENOL #3 (ACETAMINOPHEN/CODEINE) TABLETS [Concomitant]
  6. PREDNISONE [Concomitant]
  7. FOLIC ACID [Concomitant]
  8. SYNTHROID [Concomitant]
  9. LOSEC (OMEPRAZOLE) [Concomitant]
  10. DIDROCAL (DIDRONEL PMO   NORWICH EATON) [Concomitant]

REACTIONS (8)
  - BRONCHIAL CARCINOMA [None]
  - LIVER DISORDER [None]
  - LUNG NEOPLASM [None]
  - LYMPHADENOPATHY MEDIASTINAL [None]
  - METASTASIS [None]
  - PATHOLOGICAL FRACTURE [None]
  - PLEURAL EFFUSION [None]
  - RIB FRACTURE [None]
